FAERS Safety Report 18990235 (Version 2)
Quarter: 2021Q2

REPORT INFORMATION
  Report Type: Spontaneous
  Country: US (occurrence: US)
  Receive Date: 20210310
  Receipt Date: 20210521
  Transmission Date: 20210717
  Serious: Yes (Other)
  Sender: FDA-Public Use
  Company Number: US-NOVOPROD-792398

PATIENT
  Age: 69 Year
  Sex: Female
  Weight: 79.83 kg

DRUGS (2)
  1. NOVOLOG [Suspect]
     Active Substance: INSULIN ASPART
     Dosage: 7 UNITS WITHIN 10 MINUTES OF BREAKFAST, LUNCH, AND DINNER
     Route: 058
  2. NOVOLOG [Suspect]
     Active Substance: INSULIN ASPART
     Indication: TYPE 2 DIABETES MELLITUS
     Dosage: 7 UNITS WITHIN 10 MINUTES OF BREAKFAST, LUNCH, AND DINNER
     Route: 058
     Dates: start: 2000

REACTIONS (3)
  - Blood glucose increased [Recovered/Resolved]
  - Product quality issue [Unknown]
  - Migraine [Not Recovered/Not Resolved]
